FAERS Safety Report 6546597-7 (Version None)
Quarter: 2010Q1

REPORT INFORMATION
  Report Type: 
  Country: None (occurrence: None)
  Receive Date: 20100119
  Receipt Date: 20100104
  Transmission Date: 20100710
  Serious: Yes (Hospitalization)
  Sender: FDA-Public Use
  Company Number: 2009AC000106

PATIENT
  Age: 32 Year
  Sex: Male

DRUGS (9)
  1. DIGOXIN [Suspect]
     Dosage: PO
     Route: 048
  2. LIPITOR [Concomitant]
  3. CARVEDILOL [Concomitant]
  4. LASIX [Concomitant]
  5. INSULIN [Concomitant]
  6. METOLAZONE [Concomitant]
  7. PROMETHAZINE [Concomitant]
  8. HYDROCODONE [Concomitant]
  9. AZITHROMYCIN [Concomitant]

REACTIONS (26)
  - ANHEDONIA [None]
  - ANXIETY [None]
  - ARTHRITIS [None]
  - ASTHENIA [None]
  - B-CELL LYMPHOMA [None]
  - BONE PAIN [None]
  - CARDIAC DISORDER [None]
  - CARDIAC FAILURE CONGESTIVE [None]
  - CARDIOMYOPATHY [None]
  - CHEST PAIN [None]
  - COUGH [None]
  - DIZZINESS [None]
  - DYSPNOEA [None]
  - DYSSTASIA [None]
  - FATIGUE [None]
  - HEADACHE [None]
  - HYPERTENSION [None]
  - INSOMNIA [None]
  - MIGRAINE [None]
  - MULTIPLE INJURIES [None]
  - MUSCULOSKELETAL PAIN [None]
  - NEUROPATHY PERIPHERAL [None]
  - PAIN [None]
  - PYREXIA [None]
  - SURGERY [None]
  - UNEVALUABLE EVENT [None]
